FAERS Safety Report 25976352 (Version 2)
Quarter: 2025Q4

REPORT INFORMATION
  Report Type: Spontaneous
  Country: US (occurrence: US)
  Receive Date: 20251029
  Receipt Date: 20251201
  Transmission Date: 20260118
  Serious: No
  Sender: PFIZER
  Company Number: US-PFIZER INC-202500204982

PATIENT
  Age: 51 Year
  Sex: Female

DRUGS (1)
  1. ESTRING [Suspect]
     Active Substance: ESTRADIOL
     Indication: Hormone replacement therapy
     Dosage: 2 MG RING PLACED ONCE EVERY 3 MONTHS
     Dates: start: 20250416

REACTIONS (1)
  - Device expulsion [Unknown]
